FAERS Safety Report 21741485 (Version 1)
Quarter: 2022Q4

REPORT INFORMATION
  Report Type: Spontaneous
  Country: US (occurrence: US)
  Receive Date: 20221216
  Receipt Date: 20221216
  Transmission Date: 20230113
  Serious: No
  Sender: FDA-Public Use
  Company Number: US-BRISTOL-MYERS SQUIBB COMPANY-2022-153343

PATIENT
  Age: 77 Year
  Sex: Female

DRUGS (1)
  1. SPRYCEL [Suspect]
     Active Substance: DASATINIB
     Indication: Leukaemia
     Route: 048
     Dates: start: 20221116, end: 20221123

REACTIONS (5)
  - Epistaxis [Unknown]
  - Asthenia [Unknown]
  - Decreased appetite [Unknown]
  - Chills [Unknown]
  - Renal disorder [Unknown]

NARRATIVE: CASE EVENT DATE: 20221101
